FAERS Safety Report 9998886 (Version 8)
Quarter: 2018Q4

REPORT INFORMATION
  Report Type: Spontaneous
  Country: FR (occurrence: FR)
  Receive Date: 20140312
  Receipt Date: 20181218
  Transmission Date: 20190205
  Serious: Yes (Hospitalization, Disabling, Other)
  Sender: FDA-Public Use
  Company Number: FR-009507513-1311FRA008934

PATIENT
  Age: 24 Year
  Sex: Female

DRUGS (2)
  1. VARNOLINE [Suspect]
     Active Substance: DESOGESTREL\ETHINYL ESTRADIOL
     Indication: CONTRACEPTION
     Dosage: UNK
     Route: 048
     Dates: start: 2000, end: 2005
  2. MERCILON [Suspect]
     Active Substance: DESOGESTREL\ETHINYL ESTRADIOL
     Indication: PRODUCT USED FOR UNKNOWN INDICATION
     Dosage: 1 DF, QD
     Route: 048
     Dates: start: 2005, end: 20061222

REACTIONS (22)
  - Pneumonia aspiration [Unknown]
  - Haemoconcentration [Unknown]
  - Motor dysfunction [Not Recovered/Not Resolved]
  - Monoparesis [Not Recovered/Not Resolved]
  - Facial paralysis [Recovered/Resolved]
  - Facial neuralgia [Unknown]
  - Neurologic neglect syndrome [Recovered/Resolved]
  - Autonomic nervous system imbalance [Not Recovered/Not Resolved]
  - Muscle spasticity [Not Recovered/Not Resolved]
  - Acidosis [Unknown]
  - Hemianopia homonymous [Recovered/Resolved]
  - Dehydration [Unknown]
  - Carotid artery dissection [Recovered/Resolved with Sequelae]
  - Ischaemic stroke [Recovered/Resolved with Sequelae]
  - Rhabdomyolysis [Unknown]
  - Vulvovaginal mycotic infection [Unknown]
  - Hepatocellular injury [Unknown]
  - Dysarthria [Recovered/Resolved]
  - Inflammation [Unknown]
  - Gait spastic [Not Recovered/Not Resolved]
  - Anosognosia [Unknown]
  - Hypoaesthesia [Not Recovered/Not Resolved]

NARRATIVE: CASE EVENT DATE: 200612
